FAERS Safety Report 5376038-7 (Version None)
Quarter: 2007Q3

REPORT INFORMATION
  Report Type: 
  Country: None (occurrence: None)
  Receive Date: 20070702
  Receipt Date: 20070622
  Transmission Date: 20080115
  Serious: Yes (Death)
  Sender: FDA-Public Use
  Company Number: JP-AVENTIS-200711616JP

PATIENT
  Age: 80 Year
  Sex: Male
  Weight: 50.5 kg

DRUGS (1)
  1. TAXOTERE [Suspect]
     Route: 042
     Dates: start: 20070425, end: 20070516

REACTIONS (4)
  - COUGH [None]
  - DYSPNOEA [None]
  - INTERSTITIAL LUNG DISEASE [None]
  - PYREXIA [None]
